FAERS Safety Report 18666489 (Version 1)
Quarter: 2020Q4

REPORT INFORMATION
  Report Type: Spontaneous
  Country: GB (occurrence: GB)
  Receive Date: 20201227
  Receipt Date: 20201227
  Transmission Date: 20210114
  Serious: Yes (Other)
  Sender: FDA-Public Use
  Company Number: GB-TEVA-2020-GB-1861944

PATIENT
  Age: 21 Year
  Sex: Female
  Weight: 96 kg

DRUGS (1)
  1. OMEPRAZOLE. [Suspect]
     Active Substance: OMEPRAZOLE
     Dosage: 20 MG
     Dates: start: 20200506

REACTIONS (4)
  - Throat tightness [Unknown]
  - Stiff tongue [Unknown]
  - Rash [Unknown]
  - Muscle tightness [Unknown]
